FAERS Safety Report 19885957 (Version 1)
Quarter: 2021Q3

REPORT INFORMATION
  Report Type: Spontaneous
  Country: ES (occurrence: ES)
  Receive Date: 20210927
  Receipt Date: 20210927
  Transmission Date: 20211014
  Serious: Yes (Hospitalization, Other)
  Sender: FDA-Public Use
  Company Number: ES-MYLANLABS-2021M1064489

PATIENT
  Age: 59 Year
  Sex: Male

DRUGS (4)
  1. ACETYLSALICYLIC ACID [Suspect]
     Active Substance: ASPIRIN
     Indication: ANTIPLATELET THERAPY
     Dosage: UNK
     Dates: start: 202003, end: 202005
  2. PRASUGREL. [Suspect]
     Active Substance: PRASUGREL
     Indication: ANTIPLATELET THERAPY
     Dosage: UNK
     Dates: start: 202003, end: 202006
  3. TIROFIBAN [Concomitant]
     Active Substance: TIROFIBAN
     Dosage: UNK
     Route: 042
     Dates: start: 202003
  4. TICAGRELOR. [Suspect]
     Active Substance: TICAGRELOR
     Indication: PRODUCT USED FOR UNKNOWN INDICATION
     Dosage: UNK
     Dates: start: 202003

REACTIONS (4)
  - Lower gastrointestinal haemorrhage [Unknown]
  - Drug ineffective [Recovered/Resolved]
  - Vascular stent thrombosis [Recovered/Resolved]
  - Anaemia [Unknown]

NARRATIVE: CASE EVENT DATE: 202005
